FAERS Safety Report 24383163 (Version 1)
Quarter: 2024Q4

REPORT INFORMATION
  Report Type: Spontaneous
  Country: US (occurrence: US)
  Receive Date: 20241001
  Receipt Date: 20241001
  Transmission Date: 20250115
  Serious: No
  Sender: CATALYST PHARMA
  Company Number: US-CATALYST PHARMACEUTICALS-US-CATA-24-00474

PATIENT
  Age: 11 Year
  Sex: Male
  Weight: 60.2 kg

DRUGS (23)
  1. AGAMREE [Suspect]
     Active Substance: VAMOROLONE
     Indication: Duchenne muscular dystrophy
     Dosage: 7.5 ML DAILY
     Route: 048
     Dates: start: 20240515
  2. ACETAMINOPHEN [Concomitant]
     Active Substance: ACETAMINOPHEN
     Indication: Pain
     Dosage: 650 MG (2 TABLETS) Q4H AS NEEDED
     Route: 048
     Dates: start: 20230322
  3. ALBUTEROL [Concomitant]
     Active Substance: ALBUTEROL
     Indication: Product used for unknown indication
     Dosage: 2.5 MG/3 ML NEBULIZED BID
     Route: 065
     Dates: start: 20230515
  4. ALBUTEROL [Concomitant]
     Active Substance: ALBUTEROL
     Indication: Respiratory distress
     Dosage: 180 MCG=2 PUFF Q4H PRN
     Route: 065
     Dates: start: 20230515
  5. AMITRIPTYLINE [Concomitant]
     Active Substance: AMITRIPTYLINE
     Indication: Product used for unknown indication
     Dosage: 25 MG DAILY
     Route: 048
     Dates: start: 20230424
  6. CALCIUM CARBONATE\ERGOCALCIFEROL\RETINOL [Concomitant]
     Active Substance: CALCIUM CARBONATE\ERGOCALCIFEROL\RETINOL
     Indication: Product used for unknown indication
     Dosage: 1 MCG/1 ML QD G-TUBE
     Route: 048
     Dates: start: 20240306
  7. CALCIUM [Concomitant]
     Active Substance: CALCIUM
     Indication: Product used for unknown indication
     Dosage: 1250 MG THREE TIMES DAILY
     Route: 065
     Dates: start: 20231204
  8. CELEBREX [Concomitant]
     Active Substance: CELECOXIB
     Indication: Product used for unknown indication
     Dosage: 100 MG TWICE DAILY
     Route: 048
     Dates: start: 20231212
  9. CYMBALTA [Concomitant]
     Active Substance: DULOXETINE HYDROCHLORIDE
     Indication: Product used for unknown indication
     Dosage: 60 MG DAILY
     Route: 065
  10. DEFLAZACORT [Concomitant]
     Active Substance: DEFLAZACORT
     Indication: Product used for unknown indication
     Dosage: 34.125 MG (1.5 ML) QD
     Route: 048
     Dates: start: 20221212
  11. DIAZEPAM [Concomitant]
     Active Substance: DIAZEPAM
     Indication: Muscle spasms
     Dosage: 2 MG=1 TABLET Q12H PRN
     Route: 048
     Dates: start: 20230808
  12. DULOXETINE [Concomitant]
     Active Substance: DULOXETINE
     Indication: Product used for unknown indication
     Dosage: 20 MG=1 CAPSULE QDAY
     Route: 048
     Dates: start: 20240603
  13. FAMOTIDINE [Concomitant]
     Active Substance: FAMOTIDINE
     Indication: Product used for unknown indication
     Dosage: 5 ML DAILY
     Route: 048
     Dates: start: 20240108
  14. FLUOXETINE [Concomitant]
     Active Substance: FLUOXETINE HYDROCHLORIDE
     Indication: Product used for unknown indication
     Dosage: 2 CAPSULES DAILY
     Route: 048
     Dates: start: 20240603
  15. LISINOPRIL [Concomitant]
     Active Substance: LISINOPRIL
     Indication: Product used for unknown indication
     Dosage: 10 MG DAILY
     Route: 048
     Dates: start: 20240503
  16. METOPROLOL SUCCINATE [Concomitant]
     Active Substance: METOPROLOL SUCCINATE
     Indication: Product used for unknown indication
     Dosage: 12.5 MG=0.5 TABLET QD
     Route: 048
     Dates: start: 20240503
  17. OMEPRAZOLE [Concomitant]
     Active Substance: OMEPRAZOLE
     Indication: Product used for unknown indication
     Dosage: 20 ML DAILY G-TUBE
     Route: 048
     Dates: start: 20230808
  18. POLYETHYLENE GLYCOL 3350 [Concomitant]
     Active Substance: POLYETHYLENE GLYCOL 3350
     Indication: Product used for unknown indication
     Dosage: 17 G, QD
     Route: 048
     Dates: start: 20230510
  19. PROPARACAINE [Concomitant]
     Active Substance: PROPARACAINE
     Indication: Product used for unknown indication
     Dosage: 1 DROP EYES BOTH ONE TIME ONLY
     Route: 047
     Dates: start: 20230510
  20. RISPERIDONE [Concomitant]
     Active Substance: RISPERIDONE
     Indication: Agitation
     Dosage: 0.25 MG DAILY
     Route: 048
     Dates: start: 20240520
  21. TIZANIDINE [Concomitant]
     Active Substance: TIZANIDINE
     Indication: Product used for unknown indication
     Dosage: 2 MG (1 TABLET) Q8H
     Route: 048
     Dates: start: 20230403
  22. VITAMIN D [Concomitant]
     Active Substance: VITAMIN D NOS
     Indication: Product used for unknown indication
     Dosage: 5000 UNITS DAILY
     Route: 048
     Dates: start: 20230905
  23. ZOLEDRONIC ACID [Concomitant]
     Active Substance: ZOLEDRONIC ACID
     Indication: Product used for unknown indication
     Dosage: 0.7 ML EVERY SIX MONTHS
     Route: 065

REACTIONS (1)
  - Increased appetite [Not Recovered/Not Resolved]

NARRATIVE: CASE EVENT DATE: 20240528
